FAERS Safety Report 22056646 (Version 1)
Quarter: 2023Q1

REPORT INFORMATION
  Report Type: Spontaneous
  Country: CN (occurrence: CN)
  Receive Date: 20230302
  Receipt Date: 20230302
  Transmission Date: 20230417
  Serious: Yes (Life-Threatening)
  Sender: FDA-Public Use
  Company Number: None

PATIENT
  Age: 64 Year
  Sex: Female
  Weight: 65 kg

DRUGS (4)
  1. INSULIN ASPART [Suspect]
     Active Substance: INSULIN ASPART
     Indication: Type 2 diabetes mellitus
     Dosage: 36 IU, QD(20U IN THE MORNING 16U IN THE EVENING)
     Route: 058
  2. INSULIN ASPART [Suspect]
     Active Substance: INSULIN ASPART
     Dosage: 10 IU, QD(MORNING)
     Route: 058
     Dates: start: 20230207, end: 20230208
  3. INSULIN ASPART [Suspect]
     Active Substance: INSULIN ASPART
     Dosage: 15 IU, QD(10U IN THE MORNING 5U IN THE EVENING)
     Route: 058
     Dates: start: 20230131
  4. DAPAGLIFLOZIN [Suspect]
     Active Substance: DAPAGLIFLOZIN
     Indication: Type 2 diabetes mellitus
     Dosage: 10 MG, QD
     Route: 048
     Dates: end: 20230208

REACTIONS (1)
  - Diabetic ketoacidosis [Recovering/Resolving]

NARRATIVE: CASE EVENT DATE: 20230208
